FAERS Safety Report 10050337 (Version 1)
Quarter: 2014Q2

REPORT INFORMATION
  Report Type: Report from Study
  Country: US (occurrence: US)
  Receive Date: 20140401
  Receipt Date: 20140401
  Transmission Date: 20141212
  Serious: Yes (Other)
  Sender: FDA-Public Use
  Company Number: US-BAYER-2014-045195

PATIENT
  Sex: Female

DRUGS (4)
  1. ASPIRIN [Suspect]
     Indication: CEREBROVASCULAR ACCIDENT
     Dosage: UNK
  2. ASPIRIN [Suspect]
     Indication: SICKLE CELL ANAEMIA
  3. RED BLOOD CELLS [Concomitant]
     Indication: CEREBROVASCULAR ACCIDENT
     Dosage: UNK
     Route: 042
  4. RED BLOOD CELLS [Concomitant]
     Indication: SICKLE CELL ANAEMIA

REACTIONS (3)
  - Haemorrhagic stroke [None]
  - Intraventricular haemorrhage [None]
  - Convulsion [None]
